FAERS Safety Report 11290598 (Version 2)
Quarter: 2015Q3

REPORT INFORMATION
  Report Type: Spontaneous
  Country: TR (occurrence: TR)
  Receive Date: 20150722
  Receipt Date: 20150804
  Transmission Date: 20151125
  Serious: Yes (Other)
  Sender: FDA-Public Use
  Company Number: TR-AMGEN-TURSP2015023907

PATIENT
  Age: 31 Year
  Sex: Female

DRUGS (1)
  1. ENBREL [Suspect]
     Active Substance: ETANERCEPT
     Indication: ANKYLOSING SPONDYLITIS
     Dosage: 50 MG, WEEKLY
     Route: 058
     Dates: start: 20141120

REACTIONS (20)
  - Cholelithiasis [Not Recovered/Not Resolved]
  - Anxiety [Recovering/Resolving]
  - Obsessive thoughts [Recovering/Resolving]
  - Alopecia [Not Recovered/Not Resolved]
  - Hepatic enzyme increased [Recovering/Resolving]
  - Dry skin [Not Recovered/Not Resolved]
  - Uterine scar [Recovered/Resolved]
  - Uterine disorder [Recovered/Resolved]
  - Condition aggravated [Recovering/Resolving]
  - Mental disorder [Recovering/Resolving]
  - Blister [Not Recovered/Not Resolved]
  - Leiomyoma [Not Recovered/Not Resolved]
  - Insomnia [Recovering/Resolving]
  - Pruritus [Not Recovered/Not Resolved]
  - Fungal skin infection [Not Recovered/Not Resolved]
  - Hepatic steatosis [Not Recovered/Not Resolved]
  - Gait disturbance [Not Recovered/Not Resolved]
  - Rash [Not Recovered/Not Resolved]
  - Vaginal discharge [Not Recovered/Not Resolved]
  - Hepatic enzyme abnormal [Not Recovered/Not Resolved]
